FAERS Safety Report 7750853-4 (Version None)
Quarter: 2011Q3

REPORT INFORMATION
  Report Type: 
  Country: None (occurrence: None)
  Receive Date: 20110914
  Receipt Date: 20110831
  Transmission Date: 20111222
  Serious: Yes (Hospitalization, Other)
  Sender: FDA-Public Use
  Company Number: JP-PFIZER INC-2011210913

PATIENT
  Age: 72 Year
  Sex: Male

DRUGS (2)
  1. CAMPTOSAR [Suspect]
     Indication: SMALL CELL LUNG CANCER STAGE UNSPECIFIED
     Route: 041
  2. CISPLATIN [Concomitant]
     Indication: SMALL CELL LUNG CANCER STAGE UNSPECIFIED
     Route: 041

REACTIONS (4)
  - PNEUMONIA [None]
  - BLOOD PRESSURE DECREASED [None]
  - WHITE BLOOD CELL COUNT DECREASED [None]
  - SHOCK [None]
